FAERS Safety Report 25761486 (Version 1)
Quarter: 2025Q3

REPORT INFORMATION
  Report Type: Spontaneous
  Country: US (occurrence: US)
  Receive Date: 20250904
  Receipt Date: 20250904
  Transmission Date: 20251021
  Serious: No
  Sender: MEDEXUS PHARMA
  Company Number: US-MEDEXUS PHARMA, INC.-2025MED00133

PATIENT
  Sex: Female
  Weight: 61.235 kg

DRUGS (10)
  1. RASUVO [Suspect]
     Active Substance: METHOTREXATE SODIUM
     Indication: Rheumatoid arthritis
     Dosage: 25 MG, 1X/WEEK, ONCE WEEKLY ON THURSDAYS
     Route: 058
  2. METOPROLOL [Concomitant]
     Active Substance: METOPROLOL
  3. NORTRIPTYLINE [Concomitant]
     Active Substance: NORTRIPTYLINE
  4. NORTRIPTYLINE [Concomitant]
     Active Substance: NORTRIPTYLINE
  5. FOLIC ACID [Concomitant]
     Active Substance: FOLIC ACID
  6. FAMOTIDINE [Concomitant]
     Active Substance: FAMOTIDINE
  7. TOPIRAMATE [Concomitant]
     Active Substance: TOPIRAMATE
     Dosage: 100 MG, 2X/DAY
  8. SYNTHROID [Concomitant]
     Active Substance: LEVOTHYROXINE SODIUM
  9. PREDNISONE [Concomitant]
     Active Substance: PREDNISONE
     Dosage: 2.5 MG, 1X/DAY
  10. NURTEC ODT [Concomitant]
     Active Substance: RIMEGEPANT SULFATE

REACTIONS (6)
  - Influenza [Recovered/Resolved]
  - Injection site bruising [Recovered/Resolved]
  - Exposure via skin contact [Recovered/Resolved]
  - Product dose omission issue [Recovered/Resolved]
  - Device leakage [Recovered/Resolved]
  - Device mechanical issue [Recovered/Resolved]

NARRATIVE: CASE EVENT DATE: 20250101
